FAERS Safety Report 7041565-3 (Version None)
Quarter: 2010Q4

REPORT INFORMATION
  Report Type: 
  Country: None (occurrence: None)
  Receive Date: 20101013
  Receipt Date: 20091028
  Transmission Date: 20110411
  Serious: No
  Sender: FDA-Public Use
  Company Number: US-ASTRAZENECA-2009SE23081

PATIENT
  Age: 9 Year
  Sex: Male

DRUGS (2)
  1. SYMBICORT [Suspect]
     Indication: ASTHMA
     Dosage: 180/4.5
     Route: 055
     Dates: start: 20091001
  2. ALBUTEROL [Concomitant]
     Indication: ASTHMA

REACTIONS (2)
  - INFLUENZA [None]
  - OFF LABEL USE [None]
